FAERS Safety Report 6519665-3 (Version None)
Quarter: 2009Q4

REPORT INFORMATION
  Report Type: 
  Country: None (occurrence: None)
  Receive Date: 20091228
  Receipt Date: 20091217
  Transmission Date: 20100525
  Serious: Yes (Hospitalization, Disabling)
  Sender: FDA-Public Use
  Company Number: BR-PFIZER INC-2009311639

PATIENT
  Age: 10 Month
  Sex: Male

DRUGS (2)
  1. DEPO-PROVERA [Suspect]
     Indication: CONTRACEPTION
     Dosage: 150 MG, EVERY 3 MONTHS
     Route: 063
  2. FERROUS SULFATE [Concomitant]
     Indication: ANAEMIA
     Dosage: UNK

REACTIONS (2)
  - ANAEMIA [None]
  - DRUG EXPOSURE VIA BREAST MILK [None]
